FAERS Safety Report 19014885 (Version 5)
Quarter: 2022Q1

REPORT INFORMATION
  Report Type: Report from Study
  Country: US (occurrence: US)
  Receive Date: 20210317
  Receipt Date: 20220222
  Transmission Date: 20220424
  Serious: Yes (Other)
  Sender: FDA-Public Use
  Company Number: NVSC2021US060943

PATIENT
  Sex: Female

DRUGS (1)
  1. COSENTYX [Suspect]
     Active Substance: SECUKINUMAB
     Indication: Product used for unknown indication
     Dosage: UNK
     Route: 065

REACTIONS (4)
  - Tuberculosis [Unknown]
  - Pruritus [Unknown]
  - Psoriasis [Unknown]
  - Product dose omission issue [Unknown]
